FAERS Safety Report 8836694 (Version 1)
Quarter: 2012Q4

REPORT INFORMATION
  Report Type: Spontaneous
  Country: US (occurrence: None)
  Receive Date: 20121011
  Receipt Date: 20121011
  Transmission Date: 20130627
  Serious: Yes (Other)
  Sender: FDA-Public Use
  Company Number: None

PATIENT
  Age: 58 Year
  Sex: Female

DRUGS (1)
  1. HUMIRA 40MG PFS/ABBOTT LABS [Suspect]
     Indication: RHEUMATOID ARTHRITIS
     Dates: end: 20120929

REACTIONS (6)
  - Oedema peripheral [None]
  - Oedema peripheral [None]
  - Pain in extremity [None]
  - Pain in extremity [None]
  - Drug ineffective [None]
  - Condition aggravated [None]
